FAERS Safety Report 7100664-8 (Version None)
Quarter: 2010Q4

REPORT INFORMATION
  Report Type: 
  Country: None (occurrence: None)
  Receive Date: 20101113
  Receipt Date: 20100622
  Transmission Date: 20110411
  Serious: No
  Sender: FDA-Public Use
  Company Number: US-ALLERGAN-1002643US

PATIENT
  Age: 51 Year
  Sex: Female
  Weight: 68.027 kg

DRUGS (2)
  1. BOTOX COSMETIC [Suspect]
     Indication: SKIN WRINKLING
     Dosage: UNK
     Dates: start: 20100227, end: 20100227
  2. LISINOPRIL [Concomitant]
     Indication: HYPERTENSION
     Dosage: 10 MG, 1/2 TAB TWICE DAILY

REACTIONS (10)
  - DISCOMFORT [None]
  - EYE PAIN [None]
  - EYE SWELLING [None]
  - EYELID PTOSIS [None]
  - FACIAL PAIN [None]
  - HYPOAESTHESIA EYE [None]
  - RESPIRATORY TRACT CONGESTION [None]
  - SINUS HEADACHE [None]
  - SKIN HYPERPIGMENTATION [None]
  - URTICARIA [None]
